FAERS Safety Report 10098518 (Version 2)
Quarter: 2014Q2

REPORT INFORMATION
  Report Type: Spontaneous
  Country: DK (occurrence: CA)
  Receive Date: 20140423
  Receipt Date: 20140606
  Transmission Date: 20141212
  Serious: Yes (Other)
  Sender: FDA-Public Use
  Company Number: CA-FRI-1000066737

PATIENT
  Sex: Male

DRUGS (3)
  1. CELEXA [Suspect]
     Dosage: DAILY DOSE NOT REPORTED
  2. AVAPRO [Concomitant]
     Indication: HYPERTENSION
  3. LITHIUM [Concomitant]

REACTIONS (2)
  - Suicidal ideation [Unknown]
  - Drug interaction [Unknown]
